FAERS Safety Report 10744090 (Version 1)
Quarter: 2015Q1

REPORT INFORMATION
  Report Type: Spontaneous
  Country: CA (occurrence: None)
  Receive Date: 20150123
  Receipt Date: 20150123
  Transmission Date: 20150721
  Serious: Yes (Disabling, Other)
  Sender: FDA-Public Use
  Company Number: None

PATIENT
  Age: 17 Year
  Sex: Male
  Weight: 65.77 kg

DRUGS (1)
  1. AVELOX [Suspect]
     Active Substance: MOXIFLOXACIN HYDROCHLORIDE
     Indication: BRONCHITIS
     Dosage: TAKEN BY MOUTH
     Dates: start: 20150113, end: 20150119

REACTIONS (3)
  - Pain in extremity [None]
  - Feeding disorder [None]
  - Abdominal pain upper [None]

NARRATIVE: CASE EVENT DATE: 20150113
